FAERS Safety Report 7770715-6 (Version None)
Quarter: 2011Q3

REPORT INFORMATION
  Report Type: 
  Country: None (occurrence: None)
  Receive Date: 20110922
  Receipt Date: 20110208
  Transmission Date: 20111222
  Serious: No
  Sender: FDA-Public Use
  Company Number: US-ASTRAZENECA-2011SE07507

PATIENT
  Age: 51 Year
  Sex: Male

DRUGS (2)
  1. SEROQUEL XR [Suspect]
     Indication: DEPRESSION
     Route: 048
     Dates: start: 20101001
  2. NITROGLYCERIN [Concomitant]

REACTIONS (2)
  - SOMNOLENCE [None]
  - INCORRECT DOSE ADMINISTERED [None]
